FAERS Safety Report 8479190-X (Version None)
Quarter: 2012Q2

REPORT INFORMATION
  Report Type: 
  Country: None (occurrence: None)
  Receive Date: 20120629
  Receipt Date: 20120622
  Transmission Date: 20120825
  Serious: Yes (Other)
  Sender: FDA-Public Use
  Company Number: US-UCBSA-054696

PATIENT
  Sex: Female
  Weight: 58.967 kg

DRUGS (7)
  1. LAMICTAL [Concomitant]
     Indication: EPILEPSY
     Route: 048
  2. CIMZIA [Suspect]
     Indication: CROHN'S DISEASE
     Route: 058
     Dates: start: 20111116, end: 20120530
  3. ORTO-CYCLEN [Concomitant]
     Indication: CONTRACEPTION
     Route: 048
  4. MULTI-VITAMIN [Concomitant]
     Indication: VITAMIN SUPPLEMENTATION
     Route: 048
  5. FISH OIL [Concomitant]
  6. FOLIC ACID [Concomitant]
  7. LAMICTAL [Concomitant]
     Dosage: CHART LISTS SEIZURE FALL OF 2009 DUE TO FEVER

REACTIONS (2)
  - CERVICAL DYSPLASIA [None]
  - DRUG INEFFECTIVE [None]
